FAERS Safety Report 16750645 (Version 2)
Quarter: 2019Q3

REPORT INFORMATION
  Report Type: Spontaneous
  Country: JP (occurrence: JP)
  Receive Date: 20190828
  Receipt Date: 20190906
  Transmission Date: 20191005
  Serious: No
  Sender: FDA-Public Use
  Company Number: JP-ELI_LILLY_AND_COMPANY-JP201907014012

PATIENT
  Sex: Female
  Weight: 71 kg

DRUGS (3)
  1. DULOXETINE HYDROCHLORIDE. [Suspect]
     Active Substance: DULOXETINE HYDROCHLORIDE
     Indication: BACK PAIN
     Dosage: 30 MG, EACH EVENING
     Route: 048
     Dates: start: 20190705, end: 20190706
  2. CALVAN [Concomitant]
     Indication: HYPERTENSION
     Dosage: 100 MG, BID
     Route: 048
     Dates: start: 20190206
  3. DULOXETINE HYDROCHLORIDE. [Suspect]
     Active Substance: DULOXETINE HYDROCHLORIDE
     Indication: DEPRESSION

REACTIONS (6)
  - Dizziness postural [Unknown]
  - Dehydration [Unknown]
  - Urinary tract infection [Unknown]
  - Vertigo [Unknown]
  - Diarrhoea [Recovered/Resolved]
  - Acetonaemic vomiting [Unknown]

NARRATIVE: CASE EVENT DATE: 20190705
